FAERS Safety Report 8795878 (Version 1)
Quarter: 2012Q4

REPORT INFORMATION
  Report Type: 
  Country: KR (occurrence: KR)
  Receive Date: 20120919
  Receipt Date: 20120919
  Transmission Date: 20130627
  Serious: Yes (Other)
  Sender: FDA-Public Use
  Company Number: KR-UCBSA-065267

PATIENT
  Age: 60 Year
  Sex: Male

DRUGS (2)
  1. KEPPRA [Suspect]
     Route: 048
     Dates: start: 20120627
  2. TEMOZOLOMIDE [Concomitant]
     Indication: BRAIN NEOPLASM
     Dosage: DAILY DOSE: 120 MG
     Route: 048
     Dates: start: 201208

REACTIONS (1)
  - Generalised erythema [Not Recovered/Not Resolved]
